FAERS Safety Report 11620159 (Version 2)
Quarter: 2015Q4

REPORT INFORMATION
  Report Type: Spontaneous
  Country: US (occurrence: US)
  Receive Date: 20151012
  Receipt Date: 20151015
  Transmission Date: 20160304
  Serious: No
  Sender: FDA-Public Use
  Company Number: US-SA-2015SA129876

PATIENT
  Age: 50 Year
  Sex: Female

DRUGS (1)
  1. AFREZZA [Suspect]
     Active Substance: INSULIN HUMAN
     Dosage: 4U, 4U AND 8U
     Route: 055
     Dates: start: 20150622, end: 20150825

REACTIONS (1)
  - Cough [Recovering/Resolving]
